FAERS Safety Report 6589449-9 (Version None)
Quarter: 2010Q1

REPORT INFORMATION
  Report Type: 
  Country: None (occurrence: None)
  Receive Date: 20100212
  Receipt Date: 20100120
  Transmission Date: 20100710
  Serious: Yes (Hospitalization)
  Sender: FDA-Public Use
  Company Number: DSA_42504_2010

PATIENT
  Age: 62 Year
  Sex: Female

DRUGS (20)
  1. WELLBUTRIN SR [Suspect]
     Indication: DRUG USE FOR UNKNOWN INDICATION
     Dosage: (300 MG QD)
  2. LITHIUM CARBONATE [Suspect]
     Indication: DRUG USE FOR UNKNOWN INDICATION
     Dosage: (225 MG QD), (450 MG QD), (675 MG)
     Dates: start: 20090922, end: 20090928
  3. LITHIUM CARBONATE [Suspect]
     Indication: DRUG USE FOR UNKNOWN INDICATION
     Dosage: (225 MG QD), (450 MG QD), (675 MG)
     Dates: start: 20090930
  4. LAMOTRIGINE [Suspect]
     Indication: DRUG USE FOR UNKNOWN INDICATION
     Dosage: (200 MG QD)
  5. CYMBALTA [Suspect]
     Indication: DRUG USE FOR UNKNOWN INDICATION
     Dosage: (60 MG QD)
     Dates: start: 20090915
  6. DELPRAL (TIAPRIDE  HYDROCHLORIDE) [Suspect]
     Indication: DRUG USE FOR UNKNOWN INDICATION
     Dosage: (400 MG QD)
     Dates: start: 20090915
  7. CLONAZEPAM [Suspect]
     Indication: DRUG USE FOR UNKNOWN INDICATION
     Dosage: (0.25 MG QD)
     Dates: start: 20090929, end: 20090929
  8. SEROQUEL [Concomitant]
  9. ABILIFY [Concomitant]
  10. LYRICA [Concomitant]
  11. DIAMICRON [Suspect]
  12. GLUCOPHAGE [Concomitant]
  13. SOY ISOFLAVONES [Concomitant]
  14. NEXIUM [Concomitant]
  15. MEXALEN [Suspect]
  16. DIPYRONE TAB [Suspect]
  17. DICLOFENAC SODIUM [Suspect]
  18. METOCLOPRAMIDE HYDROCHLORIDE [Concomitant]
  19. PANTOPRAZOLE [Concomitant]
  20. NEUROBION [Suspect]

REACTIONS (10)
  - ALANINE AMINOTRANSFERASE INCREASED [None]
  - ASPARTATE AMINOTRANSFERASE INCREASED [None]
  - BACK PAIN [None]
  - BLOOD CREATINE INCREASED [None]
  - BLOOD CREATINE PHOSPHOKINASE INCREASED [None]
  - BLOOD GLUCOSE INCREASED [None]
  - BLOOD TRIGLYCERIDES INCREASED [None]
  - CHOLELITHIASIS [None]
  - ILEUS [None]
  - PNEUMONIA PRIMARY ATYPICAL [None]
